FAERS Safety Report 19190295 (Version 1)
Quarter: 2021Q2

REPORT INFORMATION
  Report Type: Spontaneous
  Country: DE (occurrence: DE)
  Receive Date: 20210428
  Receipt Date: 20210428
  Transmission Date: 20210717
  Serious: Yes (Hospitalization)
  Sender: FDA-Public Use
  Company Number: NVSC2021DE090556

PATIENT
  Age: 4 Year
  Sex: Female
  Weight: 13 kg

DRUGS (5)
  1. VITADRAL [Concomitant]
     Indication: CONGENITAL ANOMALY
     Dosage: 2 DRP, QD
     Route: 065
  2. VEDROP [Concomitant]
     Indication: CONGENITAL ANOMALY
     Dosage: 2 ML, QD
     Route: 065
  3. MULTIBIONTA [Concomitant]
     Active Substance: MINERALS\PROBIOTICS NOS\VITAMINS
     Indication: CONGENITAL ANOMALY
     Dosage: 36 DRP, QD
     Route: 065
  4. LEVETIRACETAM. [Suspect]
     Active Substance: LEVETIRACETAM
     Indication: EPILEPSY
     Dosage: 20 MG/KG, QD
     Route: 065
  5. INSULIN [Suspect]
     Active Substance: INSULIN NOS
     Indication: DIABETES MELLITUS
     Dosage: UNK
     Route: 065

REACTIONS (4)
  - Ketoacidosis [Recovered/Resolved]
  - Electrolyte imbalance [Recovered/Resolved]
  - Glycosuria [Recovered/Resolved]
  - Tachycardia [Recovered/Resolved]

NARRATIVE: CASE EVENT DATE: 20180910
